FAERS Safety Report 9123490 (Version 1)
Quarter: 2013Q1

REPORT INFORMATION
  Report Type: Spontaneous
  Country: US (occurrence: None)
  Receive Date: 20130131
  Receipt Date: 20130131
  Transmission Date: 20140127
  Serious: Yes (Life-Threatening)
  Sender: FDA-Public Use
  Company Number: 001464558A

PATIENT
  Age: 30 Year
  Sex: Female

DRUGS (3)
  1. PROACTIV RENEWING CLEANSER [Suspect]
     Indication: ACNE
     Dosage: 1-2X DAILY DERMAL
     Dates: start: 20121205, end: 20121211
  2. PROACTIV REPAIRING TREATMENT [Suspect]
     Indication: ACNE
     Dosage: 1-2X DAILY DERMAL
     Dates: start: 20121205, end: 20121211
  3. PROACTIV [Suspect]
     Indication: ACNE
     Dosage: 1X-2X DAILY DERMAL
     Dates: start: 20121205, end: 20121211

REACTIONS (3)
  - Dyspnoea [None]
  - Chest discomfort [None]
  - Rash generalised [None]
